FAERS Safety Report 9370399 (Version 1)
Quarter: 2013Q2

REPORT INFORMATION
  Report Type: Spontaneous
  Country: US (occurrence: US)
  Receive Date: 20130626
  Receipt Date: 20130626
  Transmission Date: 20140414
  Serious: No
  Sender: FDA-Public Use
  Company Number: US-BAYER-2013-078629

PATIENT
  Sex: Male
  Weight: 87 kg

DRUGS (4)
  1. BETASERON [Suspect]
     Dosage: 0.25 MG, QOD
     Route: 058
  2. FLOMAX [Concomitant]
     Dosage: 0.4 MG, UNK
  3. VITAMIN D [Concomitant]
     Dosage: 400, UNIT
  4. VITAMIN C [Concomitant]
     Dosage: 500 MG, UNK

REACTIONS (1)
  - Myalgia [Unknown]
